FAERS Safety Report 4354654-9 (Version None)
Quarter: 2004Q2

REPORT INFORMATION
  Report Type: 
  Country: None (occurrence: None)
  Receive Date: 20040503
  Receipt Date: 20040421
  Transmission Date: 20050107
  Serious: Yes (Other)
  Sender: FDA-Public Use
  Company Number: A03200401251

PATIENT
  Age: 36 Year
  Sex: Female

DRUGS (4)
  1. AMBIEN [Suspect]
     Indication: INSOMNIA
     Dosage: 10 MG PRN - ORAL
     Route: 048
     Dates: start: 20020101, end: 20040420
  2. BUPROPION HYDROCHLORIDE [Concomitant]
  3. LORATADINE [Concomitant]
  4. ETHINYL ESTRADIOL TAB [Concomitant]

REACTIONS (5)
  - DIZZINESS [None]
  - DYSARTHRIA [None]
  - GAIT DISTURBANCE [None]
  - LOSS OF CONSCIOUSNESS [None]
  - VOMITING [None]
